FAERS Safety Report 7221523-6 (Version None)
Quarter: 2011Q1

REPORT INFORMATION
  Report Type: 
  Country: None (occurrence: None)
  Receive Date: 20110112
  Receipt Date: 20110107
  Transmission Date: 20110831
  Serious: Yes (Death, Other)
  Sender: FDA-Public Use
  Company Number: PHHY2009CA21435

PATIENT
  Sex: Female

DRUGS (1)
  1. ZOMETA [Suspect]
     Indication: BREAST CANCER METASTATIC
     Dosage: 4 MG, EVERY 4 WEEKS
     Route: 042
     Dates: start: 20040611, end: 20101118

REACTIONS (18)
  - MUSCLE SPASMS [None]
  - BLOOD PRESSURE INCREASED [None]
  - BLOOD CREATININE INCREASED [None]
  - RED CELL DISTRIBUTION WIDTH INCREASED [None]
  - RED BLOOD CELL COUNT DECREASED [None]
  - HAEMATOCRIT DECREASED [None]
  - DEATH [None]
  - GENERAL PHYSICAL HEALTH DETERIORATION [None]
  - BLOOD GLUCOSE INCREASED [None]
  - BLOOD LACTATE DEHYDROGENASE INCREASED [None]
  - WHITE BLOOD CELL COUNT DECREASED [None]
  - LYMPHOCYTE COUNT DECREASED [None]
  - BLOOD CALCIUM DECREASED [None]
  - GLOMERULAR FILTRATION RATE DECREASED [None]
  - HAEMOGLOBIN DECREASED [None]
  - ASPARTATE AMINOTRANSFERASE INCREASED [None]
  - BLOOD CREATINE PHOSPHOKINASE INCREASED [None]
  - NEUTROPHIL COUNT DECREASED [None]
